FAERS Safety Report 20093667 (Version 6)
Quarter: 2025Q1

REPORT INFORMATION
  Report Type: Report from Study
  Country: CO (occurrence: CO)
  Receive Date: 20211121
  Receipt Date: 20250116
  Transmission Date: 20250408
  Serious: Yes (Hospitalization, Other)
  Sender: NOVARTIS
  Company Number: CO-NOVARTISPH-NVSC2021CO223040

PATIENT
  Age: 56 Year
  Sex: Male

DRUGS (3)
  1. ELTROMBOPAG OLAMINE [Suspect]
     Active Substance: ELTROMBOPAG OLAMINE
     Indication: Immune thrombocytopenia
     Dosage: 50 MG, QD
     Route: 048
  2. ELTROMBOPAG OLAMINE [Suspect]
     Active Substance: ELTROMBOPAG OLAMINE
     Route: 048
  3. ELTROMBOPAG OLAMINE [Suspect]
     Active Substance: ELTROMBOPAG OLAMINE
     Dosage: 50 MG, QD
     Route: 048
     Dates: start: 20210709

REACTIONS (8)
  - Platelet count decreased [Unknown]
  - Haemoglobin decreased [Unknown]
  - Hypoaesthesia [Unknown]
  - Dysarthria [Unknown]
  - Haemorrhage [Unknown]
  - Malaise [Unknown]
  - General physical health deterioration [Unknown]
  - Gingival bleeding [Unknown]

NARRATIVE: CASE EVENT DATE: 20250104
